FAERS Safety Report 23329641 (Version 1)
Quarter: 2023Q4

REPORT INFORMATION
  Report Type: Report from Study
  Country: AT (occurrence: AT)
  Receive Date: 20231222
  Receipt Date: 20231222
  Transmission Date: 20240110
  Serious: No
  Sender: FDA-Public Use
  Company Number: TRAVERE

PATIENT
  Sex: Male

DRUGS (2)
  1. FILSPARI [Suspect]
     Active Substance: SPARSENTAN
     Indication: Product used for unknown indication
     Dosage: IN THE MORNING
  2. FILSPARI [Suspect]
     Active Substance: SPARSENTAN
     Dosage: SWITCHED FROM MORNING TO EVENING DOSE ADMINISTRATION; DECREASED DOSE

REACTIONS (3)
  - Glomerular filtration rate decreased [Unknown]
  - Dizziness [Unknown]
  - Hypotension [Unknown]
